FAERS Safety Report 5566441-4 (Version None)
Quarter: 2007Q4

REPORT INFORMATION
  Report Type: 
  Country: None (occurrence: None)
  Receive Date: 20071219
  Receipt Date: 20071210
  Transmission Date: 20080405
  Serious: Yes (Other)
  Sender: FDA-Public Use
  Company Number: BE-JNJFOC-20071203393

PATIENT
  Age: 39 Year
  Sex: Male

DRUGS (5)
  1. REMICADE [Suspect]
     Indication: ANKYLOSING SPONDYLITIS
  2. REMICADE [Suspect]
     Indication: CROHN'S DISEASE
  3. CORTICOIDS [Concomitant]
  4. NSAIDS [Concomitant]
  5. SALAZOPYRINE [Concomitant]

REACTIONS (1)
  - ERECTILE DYSFUNCTION [None]
